FAERS Safety Report 9411942 (Version 1)
Quarter: 2013Q3

REPORT INFORMATION
  Report Type: Report from Study
  Country: IN (occurrence: IN)
  Receive Date: 20130722
  Receipt Date: 20130722
  Transmission Date: 20140515
  Serious: Yes (Death)
  Sender: FDA-Public Use
  Company Number: PHHY2013IN077119

PATIENT
  Age: 42 Year
  Sex: Male

DRUGS (1)
  1. SEBIVO [Suspect]
     Indication: CHRONIC HEPATITIS B
     Dosage: 600 MG
     Route: 048
     Dates: start: 20130417

REACTIONS (3)
  - Ascites [Fatal]
  - Haematemesis [Fatal]
  - Chronic hepatitis B [Fatal]
